FAERS Safety Report 8516078-X (Version None)
Quarter: 2012Q3

REPORT INFORMATION
  Report Type: 
  Country: None (occurrence: None)
  Receive Date: 20120717
  Receipt Date: 20120712
  Transmission Date: 20120928
  Serious: Yes (Other)
  Sender: FDA-Public Use
  Company Number: US-ABBOTT-12P-163-0955808-00

PATIENT
  Age: 59 Year
  Sex: Male

DRUGS (4)
  1. ENTOCORT EC [Concomitant]
     Indication: PRODUCT USED FOR UNKNOWN INDICATION
     Dosage: DAILY DOSE 6 MG
  2. HUMIRA [Suspect]
     Dates: start: 20120704, end: 20120704
  3. HUMIRA [Suspect]
     Indication: CROHN'S DISEASE
     Dates: start: 20101001, end: 20110301
  4. HUMIRA [Suspect]
     Dates: start: 20120703, end: 20120703

REACTIONS (5)
  - CROHN'S DISEASE [None]
  - DIZZINESS [None]
  - CALCULUS BLADDER [None]
  - OEDEMA PERIPHERAL [None]
  - DRUG DOSE OMISSION [None]
